FAERS Safety Report 9689237 (Version 1)
Quarter: 2013Q4

REPORT INFORMATION
  Report Type: Spontaneous
  Country: IR (occurrence: IR)
  Receive Date: 20131114
  Receipt Date: 20131114
  Transmission Date: 20140711
  Serious: Yes (Hospitalization)
  Sender: FDA-Public Use
  Company Number: IR-IPSEN BIOPHARMACEUTICALS, INC.-2013-4892

PATIENT
  Age: 39 Year
  Sex: Female

DRUGS (4)
  1. DYSPORT 500 UNITES SPEYWOOD [Suspect]
     Indication: TORTICOLLIS
     Dosage: 500 U
     Route: 065
  2. LIDOCAINE [Suspect]
     Indication: NERVE BLOCK
     Dosage: NOT REPORTED
     Route: 065
  3. TRIHEXYPHENIDYL [Concomitant]
     Indication: PRODUCT USED FOR UNKNOWN INDICATION
     Dosage: NOT REPORTED
     Route: 065
  4. CLONAZEPAM [Concomitant]
     Indication: PRODUCT USED FOR UNKNOWN INDICATION
     Dosage: NOT REPORTED
     Route: 065

REACTIONS (2)
  - Drug interaction [Recovered/Resolved]
  - Dysphagia [Recovered/Resolved]
